FAERS Safety Report 4968052-8 (Version None)
Quarter: 2006Q1

REPORT INFORMATION
  Report Type: 
  Country: None (occurrence: None)
  Receive Date: 20060201
  Receipt Date: 20051230
  Transmission Date: 20060701
  Serious: No
  Sender: FDA-Public Use
  Company Number: 2006PV006458

PATIENT
  Age: 65 Year
  Sex: Male
  Weight: 126.5536 kg

DRUGS (6)
  1. BYETTA [Suspect]
     Indication: DIABETES MELLITUS NON-INSULIN-DEPENDENT
     Dosage: SEE IMAGE
     Route: 058
     Dates: start: 20051130, end: 20051229
  2. BYETTA [Suspect]
     Indication: DIABETES MELLITUS NON-INSULIN-DEPENDENT
     Dosage: SEE IMAGE
     Route: 058
     Dates: start: 20051230
  3. HUMULIN 70/30 [Concomitant]
  4. HUMULIN N [Concomitant]
  5. AVANDIA [Concomitant]
  6. GLIPIZIDE [Concomitant]

REACTIONS (2)
  - DRUG EFFECT DECREASED [None]
  - WEIGHT DECREASED [None]
